FAERS Safety Report 12356275 (Version 2)
Quarter: 2016Q2

REPORT INFORMATION
  Report Type: Report from Study
  Country: US (occurrence: US)
  Receive Date: 20160511
  Receipt Date: 20160513
  Transmission Date: 20160815
  Serious: No
  Sender: FDA-Public Use
  Company Number: US-AMGEN-USASL2016059265

PATIENT
  Age: 31 Year
  Sex: Female

DRUGS (2)
  1. ENBREL [Suspect]
     Active Substance: ETANERCEPT
     Indication: PSORIASIS
     Dosage: UNK UNK, 2 TIMES/WK
     Route: 065
     Dates: start: 20160428
  2. PREDNISONE. [Concomitant]
     Active Substance: PREDNISONE
     Dosage: UNK

REACTIONS (6)
  - Chills [Unknown]
  - Heart rate increased [Unknown]
  - Injection site pain [Not Recovered/Not Resolved]
  - Hyperhidrosis [Unknown]
  - Tremor [Unknown]
  - Feeling hot [Unknown]

NARRATIVE: CASE EVENT DATE: 201604
